FAERS Safety Report 5515371-2 (Version None)
Quarter: 2007Q4

REPORT INFORMATION
  Report Type: 
  Country: None (occurrence: None)
  Receive Date: 20071109
  Receipt Date: 20071018
  Transmission Date: 20080405
  Serious: Yes (Hospitalization)
  Sender: FDA-Public Use
  Company Number: TPA2007A01736

PATIENT
  Age: 40 Year
  Sex: Female

DRUGS (11)
  1. ROZEREM [Suspect]
     Indication: INSOMNIA
     Dosage: 8 MG, QHS, PER ORAL
     Route: 048
     Dates: start: 20070813, end: 20070814
  2. ZOLOFT [Suspect]
     Dosage: 8 MG, QHS, PER ORAL
     Route: 048
     Dates: start: 20070813, end: 20070814
  3. ZOLOFT [Concomitant]
  4. TOPAMAX [Concomitant]
  5. SEROQUEL [Concomitant]
  6. PERIACTIN [Concomitant]
  7. GEODON [Concomitant]
  8. PEPCID [Concomitant]
  9. COPAXONE [Concomitant]
  10. COLACE (DOCUSATE SODIUM) [Concomitant]
  11. CATAFLAM [Concomitant]

REACTIONS (5)
  - ANXIETY [None]
  - EPISTAXIS [None]
  - MALAISE [None]
  - PANIC ATTACK [None]
  - TREMOR [None]
